FAERS Safety Report 9784072 (Version 1)
Quarter: 2013Q4

REPORT INFORMATION
  Report Type: Spontaneous
  Country: US (occurrence: US)
  Receive Date: 20131226
  Receipt Date: 20131226
  Transmission Date: 20140711
  Serious: Yes (Other)
  Sender: FDA-Public Use
  Company Number: US-009507513-1312USA008756

PATIENT
  Sex: 0

DRUGS (1)
  1. NEXPLANON [Suspect]
     Dosage: UNK
     Route: 059
     Dates: start: 20131119

REACTIONS (6)
  - Implant site infection [Unknown]
  - Device malfunction [Unknown]
  - Device breakage [Unknown]
  - Device expulsion [Unknown]
  - Pyrexia [Unknown]
  - Pain [Unknown]
